FAERS Safety Report 5732625-5 (Version None)
Quarter: 2008Q2

REPORT INFORMATION
  Report Type: 
  Country: None (occurrence: None)
  Receive Date: 20080507
  Receipt Date: 20080425
  Transmission Date: 20081010
  Serious: Yes (Other)
  Sender: FDA-Public Use
  Company Number: 233953J08USA

PATIENT
  Age: 53 Year
  Sex: Female
  Weight: 50.8029 kg

DRUGS (4)
  1. REBIF [Suspect]
     Dosage: 44 MCG, 3 IN 1 WEEKS, SUBCUTANEOUS, 8.8 MCG
     Route: 058
     Dates: start: 20031217, end: 20080101
  2. REBIF [Suspect]
     Dosage: 44 MCG, 3 IN 1 WEEKS, SUBCUTANEOUS, 8.8 MCG
     Route: 058
     Dates: start: 20080401
  3. LEVOTHYROXINE SODIUM [Concomitant]
  4. THREE UNSPECIFIED MEDICATIONS (OTHER CHOLESTEROL AND TRIGLYCERIDE REDU [Concomitant]

REACTIONS (3)
  - INFLUENZA [None]
  - WALDENSTROM'S MACROGLOBULINAEMIA [None]
  - WEIGHT DECREASED [None]
